FAERS Safety Report 8781036 (Version 2)
Quarter: 2013Q1

REPORT INFORMATION
  Report Type: Spontaneous
  Country: US (occurrence: US)
  Receive Date: 20120913
  Receipt Date: 20130215
  Transmission Date: 20140127
  Serious: Yes (Other)
  Sender: FDA-Public Use
  Company Number: US-JNJFOC-20120902114

PATIENT
  Sex: 0

DRUGS (1)
  1. TOPIRAMATE [Suspect]
     Indication: PRODUCT USED FOR UNKNOWN INDICATION
     Route: 048

REACTIONS (6)
  - Tachycardia [Unknown]
  - Bradycardia [Unknown]
  - Overdose [Unknown]
  - Gastrointestinal disorder [Unknown]
  - Mental status changes [Unknown]
  - Hypotension [Unknown]
